FAERS Safety Report 5224169-4 (Version None)
Quarter: 2007Q1

REPORT INFORMATION
  Report Type: 
  Country: None (occurrence: None)
  Receive Date: 20070130
  Receipt Date: 20070118
  Transmission Date: 20070707
  Serious: Yes (Other)
  Sender: FDA-Public Use
  Company Number: BE-PURDUE-USA_2007_0026319

PATIENT
  Sex: Male

DRUGS (1)
  1. CHLORHEXIDINE GLUCONATE [Suspect]
     Indication: DRUG USE FOR UNKNOWN INDICATION
     Dosage: UNK UNK, UNK
     Route: 065

REACTIONS (8)
  - ANAPHYLACTIC REACTION [None]
  - BRONCHIAL DISORDER [None]
  - HYPOTENSION [None]
  - OEDEMA [None]
  - PRURITUS [None]
  - SHOCK [None]
  - URTICARIA [None]
  - VENTRICULAR FIBRILLATION [None]
